FAERS Safety Report 7880707-4 (Version None)
Quarter: 2011Q4

REPORT INFORMATION
  Report Type: 
  Country: None (occurrence: None)
  Receive Date: 20111101
  Receipt Date: 20111021
  Transmission Date: 20120403
  Serious: Yes (Hospitalization)
  Sender: FDA-Public Use
  Company Number: DK-JNJFOC-20111100265

PATIENT
  Sex: Female

DRUGS (4)
  1. METHOTREXATE [Concomitant]
     Route: 048
     Dates: start: 20050318
  2. METHOTREXATE [Concomitant]
     Indication: RHEUMATOID ARTHRITIS
     Route: 030
     Dates: start: 20050303, end: 20050317
  3. REMICADE [Suspect]
     Indication: RHEUMATOID ARTHRITIS
     Dosage: 0, 2, AND 6 WEEKS AND EVERY 8 WEEKS
     Route: 065
     Dates: start: 20050303
  4. REMICADE [Suspect]
     Dosage: 0, 2, AND 6 WEEKS AND EVERY 8 WEEKS
     Route: 065

REACTIONS (2)
  - SQUAMOUS CELL CARCINOMA [None]
  - BASAL CELL CARCINOMA [None]
